FAERS Safety Report 14630314 (Version 1)
Quarter: 2018Q1

REPORT INFORMATION
  Report Type: Spontaneous
  Country: US (occurrence: US)
  Receive Date: 20180313
  Receipt Date: 20180313
  Transmission Date: 20180509
  Serious: No
  Sender: FDA-Public Use
  Company Number: None

PATIENT
  Age: 57 Year
  Sex: Female
  Weight: 99 kg

DRUGS (9)
  1. MAGNESIO [Concomitant]
  2. VITAMIN B [Concomitant]
     Active Substance: VITAMIN B
  3. CALCIUM [Concomitant]
     Active Substance: CALCIUM
  4. VITAMIN E [Concomitant]
     Active Substance: .ALPHA.-TOCOPHEROL
  5. CINNAMON. [Concomitant]
     Active Substance: CINNAMON
  6. TURMERIC [Concomitant]
     Active Substance: HERBALS\TURMERIC
  7. FISH OIL [Concomitant]
     Active Substance: FISH OIL
  8. BREO ELLIPTA [Suspect]
     Active Substance: FLUTICASONE FUROATE\VILANTEROL TRIFENATATE
     Indication: ASTHMA
     Dosage: ?          OTHER STRENGTH:MCG;QUANTITY:1 INHALATION(S);?
     Route: 055
     Dates: start: 20180309, end: 20180311
  9. DIOVAN [Concomitant]
     Active Substance: VALSARTAN

REACTIONS (1)
  - Asthma [None]

NARRATIVE: CASE EVENT DATE: 20180309
